FAERS Safety Report 21614427 (Version 1)
Quarter: 2022Q4

REPORT INFORMATION
  Report Type: Spontaneous
  Country: CA (occurrence: CA)
  Receive Date: 20221118
  Receipt Date: 20221118
  Transmission Date: 20230113
  Serious: Yes (Other)
  Sender: FDA-Public Use
  Company Number: CA-002147023-NVSC2022CA257294

PATIENT
  Sex: Male

DRUGS (1)
  1. MIDOSTAURIN [Suspect]
     Active Substance: MIDOSTAURIN
     Indication: Systemic mastocytosis
     Dosage: UNK
     Route: 065

REACTIONS (5)
  - Anaphylactic reaction [Unknown]
  - Loss of consciousness [Unknown]
  - Pain [Unknown]
  - Hypotension [Unknown]
  - Allergy to arthropod bite [Unknown]
